FAERS Safety Report 4561108-3 (Version None)
Quarter: 2005Q1

REPORT INFORMATION
  Report Type: 
  Country: None (occurrence: None)
  Receive Date: 20050126
  Receipt Date: 20050119
  Transmission Date: 20050727
  Serious: Yes (Disabling)
  Sender: FDA-Public Use
  Company Number: US-BRISTOL-MYERS SQUIBB COMPANY-12833794

PATIENT
  Age: 39 Year
  Sex: Female

DRUGS (3)
  1. TAXOL [Suspect]
     Indication: BREAST CANCER
  2. CYTOXAN [Suspect]
     Indication: BREAST CANCER
  3. ADRIAMYCIN PFS [Suspect]
     Indication: BREAST CANCER

REACTIONS (1)
  - ASEPTIC NECROSIS BONE [None]
